FAERS Safety Report 24262630 (Version 1)
Quarter: 2024Q3

REPORT INFORMATION
  Report Type: Other
  Country: HU (occurrence: HU)
  Receive Date: 20240829
  Receipt Date: 20240829
  Transmission Date: 20241017
  Serious: Yes (Other)
  Sender: ALVOGEN
  Company Number: HU-ALVOGEN-2024095349

PATIENT
  Sex: Male

DRUGS (4)
  1. DEXAMETHASONE [Suspect]
     Active Substance: DEXAMETHASONE
     Indication: Plasma cell myeloma
     Dosage: FOUR CYCLES
     Dates: start: 2017
  2. MELPHALAN [Suspect]
     Active Substance: MELPHALAN
     Indication: Plasma cell myeloma
     Dosage: 200 MG/M2
     Dates: start: 202107
  3. BORTEZOMIB [Suspect]
     Active Substance: BORTEZOMIB
     Indication: Plasma cell myeloma
     Dosage: FOUR CYCLES
     Dates: start: 2017
  4. THALIDOMIDE [Suspect]
     Active Substance: THALIDOMIDE
     Indication: Plasma cell myeloma
     Dosage: FOUR CYCLES
     Dates: start: 2017

REACTIONS (3)
  - Acute erythroid leukaemia [Unknown]
  - Myelodysplastic syndrome transformation [Unknown]
  - Off label use [Unknown]
